FAERS Safety Report 7045346-6 (Version None)
Quarter: 2010Q4

REPORT INFORMATION
  Report Type: 
  Country: None (occurrence: None)
  Receive Date: 20101008
  Receipt Date: 20101008
  Transmission Date: 20110411
  Serious: No
  Sender: FDA-Public Use
  Company Number: None

PATIENT

DRUGS (2)
  1. ARICEPT [Suspect]
     Dosage: ONE PER DAY
  2. NAMENDA [Suspect]
     Dosage: TWO PER DAY

REACTIONS (6)
  - CARDIAC DISORDER [None]
  - CONDITION AGGRAVATED [None]
  - HEART RATE DECREASED [None]
  - MENTAL DISORDER [None]
  - PAIN [None]
  - PARAESTHESIA [None]
